FAERS Safety Report 7964240 (Version 2)
Quarter: 2013Q1

REPORT INFORMATION
  Report Type: Spontaneous
  Country: GB (occurrence: GB)
  Receive Date: 20110527
  Receipt Date: 20130207
  Transmission Date: 20140127
  Serious: Yes (Life-Threatening)
  Sender: FDA-Public Use
  Company Number: GB-TEVA-280949ISR

PATIENT
  Age: 44 Year
  Sex: Female

DRUGS (2)
  1. LAMOTRIGINE [Suspect]
     Indication: PRODUCT USED FOR UNKNOWN INDICATION
     Dosage: 150 MILLIGRAM DAILY; 3 BOXES
     Route: 048
     Dates: start: 201008, end: 2011
  2. LEVETIRACETAM [Suspect]
     Indication: EPILEPSY
     Dosage: 720000 MILLIGRAM DAILY; 2 PACKS
     Route: 048
     Dates: start: 20110209, end: 2011

REACTIONS (3)
  - Suicide attempt [Recovered/Resolved]
  - Overdose [Recovered/Resolved]
  - Depressed mood [Recovered/Resolved]
